FAERS Safety Report 11186106 (Version 2)
Quarter: 2015Q2

REPORT INFORMATION
  Report Type: Report from Study
  Country: CA (occurrence: CA)
  Receive Date: 20150612
  Receipt Date: 20150619
  Transmission Date: 20150821
  Serious: Yes (Hospitalization)
  Sender: FDA-Public Use
  Company Number: CA-ABBVIE-15K-028-1406302-00

PATIENT
  Sex: Male

DRUGS (1)
  1. HUMIRA [Suspect]
     Active Substance: ADALIMUMAB
     Indication: COLITIS ULCERATIVE
     Route: 058
     Dates: start: 20150216

REACTIONS (5)
  - Chills [Not Recovered/Not Resolved]
  - Nephrolithiasis [Unknown]
  - Nasopharyngitis [Not Recovered/Not Resolved]
  - Pain [Unknown]
  - Prostatic disorder [Unknown]

NARRATIVE: CASE EVENT DATE: 2015
